FAERS Safety Report 19985170 (Version 1)
Quarter: 2021Q4

REPORT INFORMATION
  Report Type: Report from Study
  Country: KR (occurrence: KR)
  Receive Date: 20211022
  Receipt Date: 20211022
  Transmission Date: 20220303
  Serious: Yes (Hospitalization)
  Sender: FDA-Public Use
  Company Number: KR-EISAI MEDICAL RESEARCH-EC-2021-101622

PATIENT
  Age: 68 Year
  Sex: Female
  Weight: 59.3 kg

DRUGS (4)
  1. LENVIMA [Suspect]
     Active Substance: LENVATINIB
     Indication: Uterine cancer
     Route: 048
     Dates: start: 20210811, end: 2021
  2. MICATERE PLUS [Concomitant]
     Dosage: 80/12.5 MG
     Route: 048
     Dates: start: 20200316
  3. HYUNDAI TENORMIN [Concomitant]
     Route: 048
     Dates: start: 20210910
  4. PEMBROLIZUMAB [Concomitant]
     Active Substance: PEMBROLIZUMAB
     Indication: Uterine cancer
     Route: 042
     Dates: start: 20210811

REACTIONS (1)
  - Urinary tract infection [Not Recovered/Not Resolved]

NARRATIVE: CASE EVENT DATE: 20210910
